FAERS Safety Report 7771904-7 (Version None)
Quarter: 2011Q3

REPORT INFORMATION
  Report Type: 
  Country: None (occurrence: None)
  Receive Date: 20110922
  Receipt Date: 20110209
  Transmission Date: 20111222
  Serious: No
  Sender: FDA-Public Use
  Company Number: US-ASTRAZENECA-2011SE07906

PATIENT
  Age: 53 Year
  Sex: Female
  Weight: 108.9 kg

DRUGS (5)
  1. LISINOPRIL [Concomitant]
     Indication: HYPERTENSION
  2. AMBIEN [Concomitant]
     Indication: INSOMNIA
  3. REQUIP [Concomitant]
     Indication: RESTLESS LEGS SYNDROME
  4. SEROQUEL [Suspect]
     Indication: INSOMNIA
     Route: 048
  5. SEROQUEL [Suspect]
     Indication: DEPRESSION
     Route: 048

REACTIONS (4)
  - PRURITUS [None]
  - INSOMNIA [None]
  - WITHDRAWAL SYNDROME [None]
  - DRUG DOSE OMISSION [None]
